FAERS Safety Report 4618187-4 (Version None)
Quarter: 2005Q1

REPORT INFORMATION
  Report Type: 
  Country: None (occurrence: None)
  Receive Date: 20050323
  Receipt Date: 20050315
  Transmission Date: 20050727
  Serious: Yes (Hospitalization)
  Sender: FDA-Public Use
  Company Number: WAES 0503FRA00046

PATIENT
  Age: 71 Year
  Sex: Female

DRUGS (9)
  1. COZAAR [Suspect]
     Indication: CARDIAC FAILURE
     Route: 048
     Dates: start: 20050301
  2. AMIODARONE HYDROCHLORIDE [Concomitant]
  3. BISOPROLOL FUMARATE [Concomitant]
  4. BROMAZEPAM [Concomitant]
  5. FLUINDIONE [Concomitant]
  6. FUROSEMIDE [Concomitant]
  7. LOSARTAN POTASSIUM [Concomitant]
  8. POTASSIUM CHLORIDE [Concomitant]
  9. TRAMADOL HCL [Concomitant]

REACTIONS (2)
  - FALL [None]
  - LUMBAR VERTEBRAL FRACTURE [None]
